FAERS Safety Report 24742598 (Version 1)
Quarter: 2024Q4

REPORT INFORMATION
  Report Type: Spontaneous
  Country: US (occurrence: None)
  Receive Date: 20241217
  Receipt Date: 20241217
  Transmission Date: 20250114
  Serious: Yes (Hospitalization)
  Sender: Public
  Company Number: None

PATIENT
  Age: 50 Year
  Sex: Female
  Weight: 66 kg

DRUGS (1)
  1. CARBOPLATIN [Suspect]
     Active Substance: CARBOPLATIN

REACTIONS (5)
  - Pulmonary embolism [None]
  - Palpitations [None]
  - Platelet count decreased [None]
  - Oedema peripheral [None]
  - Dizziness [None]

NARRATIVE: CASE EVENT DATE: 20241205
